FAERS Safety Report 21869760 (Version 1)
Quarter: 2023Q1

REPORT INFORMATION
  Report Type: Spontaneous
  Country: US (occurrence: US)
  Receive Date: 20230117
  Receipt Date: 20230117
  Transmission Date: 20230417
  Serious: No
  Sender: FDA-Public Use
  Company Number: US-AUROBINDO-AUR-APL-2022-032419

PATIENT
  Age: 34 Year
  Sex: Female

DRUGS (1)
  1. PROGESTERONE [Suspect]
     Active Substance: PROGESTERONE
     Indication: Pregnancy
     Dosage: AS DIRECTED IN THE PRESCRIPTION BY IM
     Route: 065
     Dates: start: 20220706, end: 20220806

REACTIONS (2)
  - Urticaria [Recovering/Resolving]
  - Product quality issue [Unknown]

NARRATIVE: CASE EVENT DATE: 20220706
